FAERS Safety Report 15719375 (Version 1)
Quarter: 2018Q4

REPORT INFORMATION
  Report Type: Spontaneous
  Country: IT (occurrence: IT)
  Receive Date: 20181213
  Receipt Date: 20181213
  Transmission Date: 20190205
  Serious: Yes (Other)
  Sender: FDA-Public Use
  Company Number: IT-MYLANLABS-2018M1092070

PATIENT
  Age: 88 Year
  Sex: Female

DRUGS (8)
  1. CONGESCOR [Suspect]
     Active Substance: BISOPROLOL
     Indication: CARDIAC FAILURE CHRONIC
     Dosage: 1 DF,QD
     Route: 048
  2. GLYCERYL TRINITRATE [Suspect]
     Active Substance: NITROGLYCERIN
     Indication: ANGINA PECTORIS
     Dosage: 2 DF,QD,15 PATCHES
     Route: 003
  3. CORDARONE [Suspect]
     Active Substance: AMIODARONE HYDROCHLORIDE
     Indication: ANGINA PECTORIS
     Dosage: 1DF,QD
     Route: 048
  4. ELIQUIS [Concomitant]
     Active Substance: APIXABAN
     Dosage: 60 TABLETS
     Route: 048
  5. CORDARONE [Suspect]
     Active Substance: AMIODARONE HYDROCHLORIDE
     Dosage: 200 MG.QD
     Route: 048
  6. FUROSEMIDE. [Concomitant]
     Active Substance: FUROSEMIDE
     Dosage: 30 TABLETS
     Route: 065
  7. MADOPAR [Concomitant]
     Active Substance: BENSERAZIDE HYDROCHLORIDE\LEVODOPA
     Dosage: 100 MG PLUS 25 MG (30 CAPSULES)
     Route: 065
  8. CONGESCOR [Suspect]
     Active Substance: BISOPROLOL
     Dosage: 1 DF,QD
     Route: 048

REACTIONS (6)
  - Headache [Recovered/Resolved]
  - Hypotension [Recovered/Resolved]
  - Sopor [Recovered/Resolved]
  - Bradycardia [Recovered/Resolved]
  - Dyspnoea [Recovered/Resolved]
  - Overdose [Recovered/Resolved]

NARRATIVE: CASE EVENT DATE: 20171112
